FAERS Safety Report 9548221 (Version 3)
Quarter: 2013Q4

REPORT INFORMATION
  Report Type: Spontaneous
  Country: US (occurrence: US)
  Receive Date: 20130924
  Receipt Date: 20131031
  Transmission Date: 20140711
  Serious: Yes (Other)
  Sender: FDA-Public Use
  Company Number: US-MYLANLABS-2013S1021049

PATIENT
  Age: 33 Year
  Sex: Female
  Weight: 104.33 kg

DRUGS (1)
  1. EPIPEN 2-PAK [Suspect]
     Indication: ARTHROPOD STING
     Route: 030

REACTIONS (1)
  - Device failure [Recovered/Resolved]
